FAERS Safety Report 21850454 (Version 1)
Quarter: 2023Q1

REPORT INFORMATION
  Report Type: Spontaneous
  Country: BE (occurrence: BE)
  Receive Date: 20230111
  Receipt Date: 20230111
  Transmission Date: 20230417
  Serious: Yes (Other)
  Sender: FDA-Public Use
  Company Number: None

PATIENT
  Sex: Female

DRUGS (1)
  1. ESCITALOPRAM OXALATE [Suspect]
     Active Substance: ESCITALOPRAM OXALATE
     Indication: Depression
     Dosage: ACTUAL: 0.5CO TO 1CO PER DAY.USED FOR SEVERAL DAYS.
     Route: 048
     Dates: end: 202106

REACTIONS (4)
  - Visual impairment [Not Recovered/Not Resolved]
  - Epistaxis [Unknown]
  - Vision blurred [Not Recovered/Not Resolved]
  - Mydriasis [Recovered/Resolved]
